FAERS Safety Report 6597809-5 (Version None)
Quarter: 2010Q1

REPORT INFORMATION
  Report Type: 
  Country: None (occurrence: None)
  Receive Date: 20100216
  Receipt Date: 20100203
  Transmission Date: 20100710
  Serious: Yes (Death, Other)
  Sender: FDA-Public Use
  Company Number: 2010AP000160

PATIENT
  Sex: Male

DRUGS (2)
  1. CARBAMAZEPINE [Suspect]
     Indication: CONVULSION
     Dosage: 1 GM;QD; PO
     Route: 048
  2. DARVOCET-N 100 [Suspect]
     Indication: PROCEDURAL PAIN
     Dosage: PO
     Route: 048

REACTIONS (5)
  - CACHEXIA [None]
  - DRUG INTERACTION [None]
  - DRUG LEVEL INCREASED [None]
  - DRUG TOXICITY [None]
  - MALAISE [None]
